FAERS Safety Report 8252725-8 (Version None)
Quarter: 2012Q2

REPORT INFORMATION
  Report Type: 
  Country: None (occurrence: None)
  Receive Date: 20120402
  Receipt Date: 20110829
  Transmission Date: 20120825
  Serious: No
  Sender: FDA-Public Use
  Company Number: US-ABBOTT-11P-163-0850116-00

PATIENT
  Sex: Male
  Weight: 96.248 kg

DRUGS (3)
  1. GABAPENTIN [Concomitant]
     Indication: ANXIETY
  2. METOPROLOL TARTRATE [Concomitant]
     Indication: HYPERTENSION
  3. ANDROGEL [Suspect]
     Indication: BLOOD TESTOSTERONE DECREASED
     Dates: start: 20110601, end: 20110601

REACTIONS (2)
  - APPLICATION SITE RASH [None]
  - APPLICATION SITE PRURITUS [None]
